FAERS Safety Report 14246409 (Version 1)
Quarter: 2017Q4

REPORT INFORMATION
  Report Type: Spontaneous
  Country: US (occurrence: None)
  Receive Date: 20171201
  Receipt Date: 20171201
  Transmission Date: 20180321
  Serious: No
  Sender: FDA-Public Use
  Company Number: None

PATIENT
  Age: 66 Year
  Sex: Female

DRUGS (1)
  1. HUMIRA [Suspect]
     Active Substance: ADALIMUMAB
     Indication: POLYARTHRITIS
     Route: 058
     Dates: start: 20161229, end: 20171130

REACTIONS (3)
  - Injection site bruising [None]
  - Injection site haemorrhage [None]
  - Psoriasis [None]

NARRATIVE: CASE EVENT DATE: 20171101
